FAERS Safety Report 25650370 (Version 2)
Quarter: 2025Q4

REPORT INFORMATION
  Report Type: Spontaneous
  Country: US (occurrence: US)
  Receive Date: 20250806
  Receipt Date: 20251212
  Transmission Date: 20260118
  Serious: Yes (Hospitalization)
  Sender: ELI LILLY AND COMPANY
  Company Number: US-ELI_LILLY_AND_COMPANY-US202507027607

PATIENT
  Age: 64 Year
  Sex: Male
  Weight: 108.84 kg

DRUGS (18)
  1. TRULICITY [Suspect]
     Active Substance: DULAGLUTIDE
     Indication: Type 2 diabetes mellitus
     Dosage: UNK UNK, UNKNOWN
     Route: 065
     Dates: start: 20210914, end: 20210928
  2. TRULICITY [Suspect]
     Active Substance: DULAGLUTIDE
     Indication: Obesity
  3. OZEMPIC [Suspect]
     Active Substance: SEMAGLUTIDE
     Indication: Type 2 diabetes mellitus
     Dosage: 0.25 MG, WEEKLY (1/W)
     Route: 065
     Dates: start: 20210929, end: 20211116
  4. OZEMPIC [Suspect]
     Active Substance: SEMAGLUTIDE
     Indication: Obesity
     Dosage: 0.25 MG, WEEKLY (1/W)
     Route: 065
     Dates: start: 20211130, end: 20220113
  5. ALBUTEROL SULFATE [Concomitant]
     Active Substance: ALBUTEROL SULFATE
     Indication: Asthma
     Dosage: UNK
     Dates: start: 20180422, end: 20221026
  6. ROSUVASTATIN [Concomitant]
     Active Substance: ROSUVASTATIN
     Indication: Blood cholesterol
     Dosage: UNK
     Dates: start: 20210517, end: 20230202
  7. INSULIN ASPART [Concomitant]
     Active Substance: INSULIN ASPART
     Indication: Diabetes mellitus
     Dosage: UNK
     Dates: start: 20210611, end: 20211221
  8. BIKTARVY [Concomitant]
     Active Substance: BICTEGRAVIR SODIUM\EMTRICITABINE\TENOFOVIR ALAFENAMIDE FUMARATE
     Indication: HIV infection
     Dosage: UNK UNK, UNKNOWN
     Route: 065
     Dates: start: 20200514, end: 20210218
  9. BIKTARVY [Concomitant]
     Active Substance: BICTEGRAVIR SODIUM\EMTRICITABINE\TENOFOVIR ALAFENAMIDE FUMARATE
     Dosage: UNK UNK, UNKNOWN
     Route: 065
     Dates: start: 20211122, end: 20220512
  10. BIKTARVY [Concomitant]
     Active Substance: BICTEGRAVIR SODIUM\EMTRICITABINE\TENOFOVIR ALAFENAMIDE FUMARATE
     Dosage: UNK UNK, UNKNOWN
     Route: 065
     Dates: start: 20220512, end: 20230929
  11. VALSARTAN [Concomitant]
     Active Substance: VALSARTAN
     Indication: Hypertension
     Dosage: UNK UNK, UNKNOWN
     Route: 065
     Dates: start: 20210218, end: 20220808
  12. VALSARTAN [Concomitant]
     Active Substance: VALSARTAN
     Dosage: UNK UNK, UNKNOWN
     Route: 065
     Dates: start: 20230225, end: 20230929
  13. PREDNISONE [Concomitant]
     Active Substance: PREDNISONE
     Indication: Inflammation
     Dosage: UNK
     Dates: start: 20210524, end: 20210524
  14. PREGABALIN [Concomitant]
     Active Substance: PREGABALIN
     Indication: Neuropathy peripheral
     Dosage: UNK
     Dates: start: 20211122, end: 20230929
  15. OXYCODONE [Concomitant]
     Active Substance: OXYCODONE
     Indication: Pain
     Dosage: UNK
     Dates: start: 20210329, end: 20210329
  16. HYDROCODONE [Concomitant]
     Active Substance: HYDROCODONE
     Indication: Pain
     Dosage: UNK
     Dates: start: 20211206, end: 20211206
  17. AZELASTINE [Concomitant]
     Active Substance: AZELASTINE
     Indication: Rhinitis
     Dosage: UNK UNK, UNKNOWN
     Route: 065
     Dates: start: 20210623, end: 20210623
  18. AZELASTINE [Concomitant]
     Active Substance: AZELASTINE
     Dosage: UNK UNK, UNKNOWN
     Route: 065
     Dates: start: 20221026, end: 20221026

REACTIONS (7)
  - Intestinal obstruction [Unknown]
  - Ileus [Unknown]
  - Nausea [Recovered/Resolved]
  - Constipation [Unknown]
  - Vomiting [Unknown]
  - Abdominal pain [Recovered/Resolved]
  - Diarrhoea [Recovered/Resolved]

NARRATIVE: CASE EVENT DATE: 20220128
